FAERS Safety Report 9103535 (Version 1)
Quarter: 2013Q1

REPORT INFORMATION
  Report Type: Report from Study
  Country: CA (occurrence: CA)
  Receive Date: 20130218
  Receipt Date: 20130218
  Transmission Date: 20140127
  Serious: Yes (Hospitalization, Other)
  Sender: FDA-Public Use
  Company Number: CA-GLAXOSMITHKLINE-A1012319A

PATIENT
  Age: 16 Year
  Sex: Male
  Weight: 85 kg

DRUGS (9)
  1. ONDANSETRON [Suspect]
     Indication: PRODUCT USED FOR UNKNOWN INDICATION
  2. BORTEZOMIB [Suspect]
     Indication: ACUTE MYELOID LEUKAEMIA
     Dosage: 1.3MGM2 CYCLIC
     Route: 040
     Dates: start: 20130126, end: 20130126
  3. CYTARABINE [Suspect]
     Indication: ACUTE MYELOID LEUKAEMIA
     Dates: start: 20130126
  4. DAUNORUBICIN HYDROCHLORIDE [Suspect]
     Indication: ACUTE MYELOID LEUKAEMIA
     Dosage: 50MGM2 CYCLIC
     Route: 042
     Dates: start: 20130126, end: 20130128
  5. ETOPOSIDE [Suspect]
     Indication: ACUTE MYELOID LEUKAEMIA
     Dosage: 100MGM2 CYCLIC
     Route: 042
     Dates: start: 20130126
  6. PIPERACILLIN SODIUM + TAZOBACTAM SODIUM [Concomitant]
  7. ALLOPURINOL [Concomitant]
  8. FUROSEMID [Concomitant]
  9. GRAVOL [Concomitant]

REACTIONS (1)
  - Ventricular tachycardia [Recovered/Resolved]
